FAERS Safety Report 19640707 (Version 3)
Quarter: 2021Q3

REPORT INFORMATION
  Report Type: Spontaneous
  Country: US (occurrence: US)
  Receive Date: 20210729
  Receipt Date: 20210919
  Transmission Date: 20211014
  Serious: No
  Sender: FDA-Public Use
  Company Number: US-JNJFOC-20210745980

PATIENT
  Sex: Female

DRUGS (1)
  1. TREMFYA [Suspect]
     Active Substance: GUSELKUMAB
     Indication: HYPERSENSITIVITY
     Route: 058

REACTIONS (4)
  - Device issue [Unknown]
  - Off label use [Unknown]
  - Product use in unapproved indication [Unknown]
  - Product dose omission issue [Unknown]
